FAERS Safety Report 14218687 (Version 1)
Quarter: 2017Q4

REPORT INFORMATION
  Report Type: Spontaneous
  Country: BR (occurrence: BR)
  Receive Date: 20171123
  Receipt Date: 20171123
  Transmission Date: 20180321
  Serious: Yes (Hospitalization, Other)
  Sender: FDA-Public Use
  Company Number: BR-JNJFOC-20171125547

PATIENT
  Age: 68 Year
  Sex: Male

DRUGS (2)
  1. AAS [Concomitant]
     Active Substance: ASPIRIN
     Route: 065
  2. XARELTO [Suspect]
     Active Substance: RIVAROXABAN
     Indication: DEEP VEIN THROMBOSIS
     Route: 065

REACTIONS (4)
  - Hemiplegia [Unknown]
  - Cerebral haemorrhage [Unknown]
  - Cerebral thrombosis [Unknown]
  - Palpitations [Unknown]

NARRATIVE: CASE EVENT DATE: 20171028
